FAERS Safety Report 5693550-1 (Version None)
Quarter: 2008Q2

REPORT INFORMATION
  Report Type: 
  Country: None (occurrence: None)
  Receive Date: 20080402
  Receipt Date: 20080402
  Transmission Date: 20081010
  Serious: No
  Sender: FDA-Public Use
  Company Number: None

PATIENT
  Sex: Female
  Weight: 68.0396 kg

DRUGS (1)
  1. PREMPRO [Suspect]
     Indication: HORMONE REPLACEMENT THERAPY
     Dosage: 1 TABLET DAILY PO
     Route: 048
     Dates: start: 20071026, end: 20071103

REACTIONS (9)
  - CONTUSION [None]
  - EPISTAXIS [None]
  - HAIR GROWTH ABNORMAL [None]
  - HOT FLUSH [None]
  - HYPERTENSION [None]
  - MENSTRUAL DISORDER [None]
  - MUSCLE SPASMS [None]
  - PALPITATIONS [None]
  - VASODILATATION [None]
